FAERS Safety Report 4513408-0 (Version None)
Quarter: 2004Q4

REPORT INFORMATION
  Report Type: 
  Country: None (occurrence: None)
  Receive Date: 20041130
  Receipt Date: 20040916
  Transmission Date: 20050328
  Serious: Yes (Other)
  Sender: FDA-Public Use
  Company Number: US-BRISTOL-MYERS SQUIBB COMPANY-12705000

PATIENT
  Age: 38 Year
  Sex: Male
  Weight: 109 kg

DRUGS (7)
  1. ERBITUX [Suspect]
     Indication: ADENOCARCINOMA
     Dosage: STARTED 23-JUL OR 30-JUL 04, LAST DOSE 13-SEP-04
     Route: 042
     Dates: start: 20040701, end: 20040701
  2. CLINDAMYCIN PHOSPHATE [Suspect]
     Indication: ACNE
     Dosage: 1% TOPICAL SOLUTION
     Route: 061
     Dates: start: 20040101
  3. IRINOTECAN HCL [Concomitant]
     Dates: start: 20040701, end: 20040701
  4. BENADRYL [Concomitant]
     Indication: PREMEDICATION
     Route: 042
  5. DECADRON [Concomitant]
     Indication: PREMEDICATION
     Route: 042
  6. WARFARIN [Concomitant]
     Dates: start: 20040601
  7. FRAGMIN [Concomitant]
     Dates: start: 20040101

REACTIONS (5)
  - ABDOMINAL PAIN [None]
  - ACNE [None]
  - ALOPECIA [None]
  - DRY SKIN [None]
  - VOMITING [None]
